FAERS Safety Report 12587463 (Version 9)
Quarter: 2018Q2

REPORT INFORMATION
  Report Type: Spontaneous
  Country: US (occurrence: US)
  Receive Date: 20160725
  Receipt Date: 20180608
  Transmission Date: 20180711
  Serious: Yes (Hospitalization, Congenital Anomaly, Other)
  Sender: FDA-Public Use
  Company Number: PHEH2016US018232

PATIENT
  Sex: Female

DRUGS (4)
  1. ZOFRAN [Suspect]
     Active Substance: ONDANSETRON HYDROCHLORIDE
     Indication: FOETAL EXPOSURE DURING PREGNANCY
     Dosage: MOTHER^S DOSE: 1 DF, PRN
     Route: 064
  2. ZOFRAN [Suspect]
     Active Substance: ONDANSETRON HYDROCHLORIDE
     Indication: FOETAL EXPOSURE DURING PREGNANCY
     Dosage: MOTHER^S DOSE: 8 MG, QD
     Route: 064
  3. ONDANSETRON HYDROCHLORIDE. [Suspect]
     Active Substance: ONDANSETRON HYDROCHLORIDE
     Indication: FOETAL EXPOSURE DURING PREGNANCY
     Route: 064
  4. ONDANSETRON. [Suspect]
     Active Substance: ONDANSETRON
     Indication: FOETAL EXPOSURE DURING PREGNANCY
     Dosage: MOTHER^S DOSE: 04 MG, PRN
     Route: 064

REACTIONS (66)
  - Congenital anomaly [Unknown]
  - Pulmonary artery stenosis congenital [Unknown]
  - Right ventricular hypertension [Unknown]
  - Keratosis pilaris [Unknown]
  - Pericardial effusion [Unknown]
  - Cardiomegaly [Unknown]
  - Brain injury [Unknown]
  - Gastric fistula [Unknown]
  - Postpericardiotomy syndrome [Unknown]
  - Injury [Unknown]
  - Cyanosis [Unknown]
  - Asthma [Unknown]
  - Gastrooesophageal reflux disease [Unknown]
  - Transposition of the great vessels [Unknown]
  - Left-to-right cardiac shunt [Unknown]
  - Pulmonary artery dilatation [Unknown]
  - Developmental delay [Unknown]
  - Haemorrhage [Unknown]
  - Periventricular leukomalacia [Unknown]
  - Metabolic acidosis [Unknown]
  - Speech disorder [Unknown]
  - Monoplegia [Unknown]
  - Bicuspid pulmonary valve [Unknown]
  - Foetal exposure during pregnancy [Unknown]
  - Cerebral ischaemia [Unknown]
  - Encephalomalacia [Unknown]
  - Emotional distress [Unknown]
  - Weight gain poor [Unknown]
  - Constipation [Unknown]
  - Ear infection [Unknown]
  - Foot deformity [Unknown]
  - Vomiting [Unknown]
  - Tricuspid valve incompetence [Unknown]
  - Eye disorder [Unknown]
  - Heart disease congenital [Unknown]
  - Congenital brain damage [Unknown]
  - Atrial septal defect [Unknown]
  - Aortic valve incompetence [Unknown]
  - Pulmonary valve incompetence [Unknown]
  - Peripheral artery occlusion [Unknown]
  - Right ventricular dilatation [Unknown]
  - Right ventricular hypertrophy [Unknown]
  - Haematochezia [Unknown]
  - Bronchiolitis [Unknown]
  - Irritability [Unknown]
  - Atelectasis [Unknown]
  - Gastrointestinal tract irritation [Unknown]
  - Strabismus [Unknown]
  - Respiratory distress [Unknown]
  - Hypoxia [Unknown]
  - Respiratory acidosis [Unknown]
  - Tachypnoea [Unknown]
  - Amblyopia [Unknown]
  - Multiple congenital abnormalities [Unknown]
  - Patent ductus arteriosus [Unknown]
  - Pulmonary oedema [Unknown]
  - Retinal detachment [Unknown]
  - Pain [Unknown]
  - Anhedonia [Unknown]
  - Feeding disorder [Unknown]
  - Ehlers-Danlos syndrome [Unknown]
  - Cerebral palsy [Unknown]
  - Pneumonia [Unknown]
  - Limb asymmetry [Unknown]
  - Anxiety [Unknown]
  - Rhinitis allergic [Unknown]
